FAERS Safety Report 18741371 (Version 1)
Quarter: 2021Q1

REPORT INFORMATION
  Report Type: Spontaneous
  Country: US (occurrence: US)
  Receive Date: 20210114
  Receipt Date: 20210114
  Transmission Date: 20210419
  Serious: No
  Sender: FDA-Public Use
  Company Number: US-ABBVIE-20K-163-3384762-00

PATIENT
  Age: 57 Year
  Sex: Male

DRUGS (1)
  1. DUOPA [Suspect]
     Active Substance: CARBIDOPA\LEVODOPA
     Indication: PRODUCT USED FOR UNKNOWN INDICATION
     Route: 050
     Dates: start: 202003

REACTIONS (3)
  - Dyskinesia [Recovering/Resolving]
  - On and off phenomenon [Recovering/Resolving]
  - Unintentional medical device removal [Unknown]

NARRATIVE: CASE EVENT DATE: 202004
